APPROVED DRUG PRODUCT: METHOCARBAMOL
Active Ingredient: METHOCARBAMOL
Strength: 750MG
Dosage Form/Route: TABLET;ORAL
Application: A203550 | Product #002 | TE Code: AA
Applicant: PHARMOBEDIENT CONSULTING LLC
Approved: Feb 8, 2017 | RLD: No | RS: No | Type: RX